FAERS Safety Report 13484634 (Version 1)
Quarter: 2017Q2

REPORT INFORMATION
  Report Type: Report from Study
  Country: IT (occurrence: IT)
  Receive Date: 20170425
  Receipt Date: 20170425
  Transmission Date: 20170830
  Serious: Yes (Other)
  Sender: FDA-Public Use
  Company Number: IT-ACTELION-A-CH2017-149865

PATIENT
  Age: 51 Year
  Sex: Male
  Weight: 109 kg

DRUGS (2)
  1. ZAVESCA [Suspect]
     Active Substance: MIGLUSTAT
     Indication: NIEMANN-PICK DISEASE
     Dosage: 200 MG, TID
     Route: 048
     Dates: start: 20080603
  2. ALLOPURINOLO [Concomitant]
     Active Substance: ALLOPURINOL

REACTIONS (2)
  - Thrombocytosis [Unknown]
  - Seizure [Not Recovered/Not Resolved]
